FAERS Safety Report 5759611-3 (Version None)
Quarter: 2008Q2

REPORT INFORMATION
  Report Type: 
  Country: None (occurrence: None)
  Receive Date: 20080605
  Receipt Date: 20080527
  Transmission Date: 20081010
  Serious: Yes (Other)
  Sender: FDA-Public Use
  Company Number: US-ELI_LILLY_AND_COMPANY-US200805005477

PATIENT
  Sex: Female

DRUGS (1)
  1. XIGRIS [Suspect]
     Dosage: OTHER; 24 HOURS
     Dates: start: 20080501, end: 20080501

REACTIONS (1)
  - PLATELET COUNT DECREASED [None]
